FAERS Safety Report 22608547 (Version 3)
Quarter: 2024Q1

REPORT INFORMATION
  Report Type: Report from Study
  Country: CA (occurrence: CA)
  Receive Date: 20230616
  Receipt Date: 20240213
  Transmission Date: 20240410
  Serious: Yes (Other)
  Sender: FDA-Public Use
  Company Number: CA-JNJFOC-20230632415

PATIENT
  Age: 45 Year
  Sex: Male

DRUGS (1)
  1. SIMPONI [Suspect]
     Active Substance: GOLIMUMAB
     Indication: Psoriatic arthropathy
     Route: 058
     Dates: start: 20230401, end: 20230612

REACTIONS (3)
  - Neoplasm malignant [Unknown]
  - Diabetes mellitus [Unknown]
  - Blood cholesterol increased [Unknown]
